FAERS Safety Report 10866130 (Version 1)
Quarter: 2015Q1

REPORT INFORMATION
  Report Type: Spontaneous
  Country: US (occurrence: None)
  Receive Date: 20150219
  Receipt Date: 20150219
  Transmission Date: 20150721
  Serious: No
  Sender: FDA-Public Use
  Company Number: None

PATIENT
  Age: 46 Year
  Sex: Female
  Weight: 56.7 kg

DRUGS (1)
  1. MELOXICAM 15 MG TAB MYL MYLAN (A YELLOW-ROUND TAB IMPRINTED M [Suspect]
     Active Substance: MELOXICAM
     Indication: INFLAMMATION
     Dosage: 15 MF 1 TABLET ONCE DAILY MOUTH
     Route: 048
     Dates: start: 20150109, end: 20150114

REACTIONS (1)
  - Insomnia [None]

NARRATIVE: CASE EVENT DATE: 20150112
